FAERS Safety Report 6782662-7 (Version None)
Quarter: 2010Q2

REPORT INFORMATION
  Report Type: 
  Country: None (occurrence: None)
  Receive Date: 20100621
  Receipt Date: 20100607
  Transmission Date: 20101027
  Serious: Yes (Other)
  Sender: FDA-Public Use
  Company Number: US-ELI_LILLY_AND_COMPANY-US201003001925

PATIENT
  Sex: Female
  Weight: 66.2 kg

DRUGS (6)
  1. GEMZAR [Suspect]
     Indication: PANCREATIC CARCINOMA
     Dosage: 1000 MG/M2, WEEKLY FOR 3 WKS, THEN 1 WK OFF
     Route: 042
     Dates: start: 20091208, end: 20091208
  2. GEMZAR [Suspect]
     Dosage: 1275 MG/M2, WEEKLY, 3 WKS ON, 1 WK OFF
     Route: 042
     Dates: start: 20091205
  3. CALCIUM + VITAMIN D [Concomitant]
  4. ZOFRAN [Concomitant]
     Indication: ANTIEMETIC SUPPORTIVE CARE
  5. DECADRON [Concomitant]
     Indication: ANTIEMETIC SUPPORTIVE CARE
  6. ALEVE (CAPLET) [Concomitant]
     Dosage: UNK, AS NEEDED

REACTIONS (4)
  - NEUTROPENIA [None]
  - PHLEBITIS [None]
  - PULMONARY EMBOLISM [None]
  - THROMBOPHLEBITIS SUPERFICIAL [None]
